FAERS Safety Report 8107607 (Version 2)
Quarter: 2013Q2

REPORT INFORMATION
  Report Type: Report from Study
  Country: US (occurrence: US)
  Receive Date: 20110825
  Receipt Date: 20130502
  Transmission Date: 20140414
  Serious: Yes (Hospitalization)
  Sender: FDA-Public Use
  Company Number: US-BRISTOL-MYERS SQUIBB COMPANY-15945579

PATIENT
  Age: 56 Year
  Sex: Female
  Weight: 53.51 kg

DRUGS (24)
  1. CETUXIMAB [Suspect]
     Indication: HEAD AND NECK CANCER
     Dosage: INTERRUPTED ON 21JUL11(28D)RESUMED ON 11AUG2011?RECENT INF(4TH):21JUL11
     Route: 042
     Dates: start: 20110623
  2. CISPLATIN [Suspect]
     Indication: HEAD AND NECK CANCER
     Dosage: INTERRUPTED ON 14JUL11(21D)RESUMED ON 11AUG11?RECENT INF(2ND):14JUL11
     Route: 042
     Dates: start: 20110623
  3. 5-FLUOROURACIL [Suspect]
     Indication: HEAD AND NECK CANCER
     Dosage: INTERRUPTED ON 18JUL11(25D)RESUMED ON 11AUG11?RECENT INF(2ND):18JUL11
     Route: 042
     Dates: start: 20110623
  4. MEGACE [Concomitant]
     Route: 048
     Dates: start: 20110721
  5. DEXAMETHASONE SODIUM PHOSPHATE [Concomitant]
     Dates: start: 20100923
  6. DIPHENHYDRAMINE HCL [Concomitant]
     Route: 065
     Dates: start: 20101228
  7. FLORINEF [Concomitant]
     Route: 048
     Dates: start: 20110721
  8. PALONOSETRON [Concomitant]
     Dates: start: 20100923
  9. RESTORIL [Concomitant]
     Dosage: I CAP AT BED TIME AS NEEDED
     Route: 048
     Dates: start: 20110713
  10. LEXAPRO [Concomitant]
     Route: 048
  11. METFORMIN [Concomitant]
     Route: 048
  12. BACTRIM DS [Concomitant]
     Dosage: 1DF:800-160MG
     Route: 048
     Dates: start: 20101005
  13. EMEND [Concomitant]
     Route: 042
     Dates: start: 20110623
  14. OMNIPAQUE [Concomitant]
     Dosage: 100ML(OF 300MG/ML) (100ML UNK)
     Route: 042
     Dates: start: 20101229
  15. PEGFILGRASTIM [Concomitant]
     Route: 058
     Dates: start: 20101003
  16. PREVACID [Concomitant]
     Route: 048
     Dates: start: 20110117
  17. PROCHLORPERAZINE [Concomitant]
     Dosage: EVERY 8 HRS
     Route: 054
     Dates: start: 20100923
  18. PROCHLORPERAZINE MALEATE [Concomitant]
     Dosage: EVERY 6 HRS
     Route: 048
     Dates: start: 20100923
  19. PROMETHAZINE HCL [Concomitant]
     Route: 042
     Dates: start: 20110627
  20. RANITIDINE HCL [Concomitant]
     Dosage: 50MG IN NS 50ML
     Route: 042
     Dates: start: 20101228
  21. SODIUM CHLORIDE [Concomitant]
     Route: 042
     Dates: start: 20110125
  22. ZOFRAN [Concomitant]
     Route: 048
     Dates: start: 20100923
  23. LANSOPRAZOLE [Concomitant]
  24. CALCIUM PHOSPHATE [Concomitant]

REACTIONS (2)
  - Dehydration [Recovered/Resolved]
  - Clostridium difficile colitis [Recovered/Resolved]
